FAERS Safety Report 10208145 (Version 1)
Quarter: 2014Q2

REPORT INFORMATION
  Report Type: Spontaneous
  Country: US (occurrence: US)
  Receive Date: 20140530
  Receipt Date: 20140530
  Transmission Date: 20141212
  Serious: No
  Sender: FDA-Public Use
  Company Number: US-PURDUE-USA-2013-0105268

PATIENT
  Sex: Female

DRUGS (3)
  1. MORPHINE SULFATE (SIMILAR TO NDA 19-516) [Suspect]
     Indication: RENAL PAIN
     Dosage: 90 MG, QID
     Route: 048
     Dates: start: 2000
  2. MORPHINE SULFATE (SIMILAR TO NDA 19-516) [Suspect]
     Indication: PAIN
     Dosage: 15 MG, UNK
     Route: 048
     Dates: start: 2000
  3. MORPHINE SULFATE (SIMILAR TO NDA 19-516) [Suspect]
     Indication: BREAKTHROUGH PAIN

REACTIONS (3)
  - Drug withdrawal syndrome [Unknown]
  - Pain [Unknown]
  - Anxiety [Unknown]
